FAERS Safety Report 7630270-8 (Version None)
Quarter: 2011Q3

REPORT INFORMATION
  Report Type: 
  Country: None (occurrence: None)
  Receive Date: 20110722
  Receipt Date: 20110713
  Transmission Date: 20111222
  Serious: Yes (Other)
  Sender: FDA-Public Use
  Company Number: PHHY2011GB62503

PATIENT
  Age: 39 Year
  Sex: Male

DRUGS (4)
  1. MIRTAZAPINE [Suspect]
     Indication: DEPRESSION
     Dosage: 45 MG, QD
     Dates: start: 20100701
  2. HYOSCINE [Concomitant]
     Dosage: UNK
  3. CLOZAPINE [Concomitant]
     Dosage: UNK
  4. LAMOTRIGINE [Concomitant]
     Dosage: UNK

REACTIONS (4)
  - WITHDRAWAL SYNDROME [None]
  - INSOMNIA [None]
  - NAUSEA [None]
  - DRUG ADMINISTRATION ERROR [None]
